FAERS Safety Report 20156812 (Version 1)
Quarter: 2021Q4

REPORT INFORMATION
  Report Type: Other
  Country: ZA (occurrence: None)
  Receive Date: 20211207
  Receipt Date: 20211207
  Transmission Date: 20220304
  Serious: Yes (Hospitalization)
  Sender: FDA-Public Use
  Company Number: ZA-ROCHE-2968471

PATIENT
  Age: 10 Year
  Sex: Female

DRUGS (1)
  1. ACTEMRA [Suspect]
     Active Substance: TOCILIZUMAB
     Indication: Still^s disease
     Route: 058
     Dates: start: 20210915

REACTIONS (11)
  - Upper respiratory tract infection [Unknown]
  - Investigation abnormal [Unknown]
  - Condition aggravated [Unknown]
  - Drug ineffective [Unknown]
  - Pain [Unknown]
  - Joint swelling [Unknown]
  - Joint swelling [Unknown]
  - Pyrexia [Unknown]
  - Rash [Unknown]
  - C-reactive protein increased [Unknown]
  - Inflammation [Unknown]

NARRATIVE: CASE EVENT DATE: 20211115
